FAERS Safety Report 4320637-8 (Version None)
Quarter: 2004Q1

REPORT INFORMATION
  Report Type: 
  Country: None (occurrence: None)
  Receive Date: 20040319
  Receipt Date: 20040319
  Transmission Date: 20041129
  Serious: Yes (Hospitalization)
  Sender: FDA-Public Use
  Company Number: None

PATIENT
  Age: 62 Year
  Sex: Male
  Weight: 70.3 kg

DRUGS (6)
  1. AVELOX [Suspect]
     Dosage: PO QD
     Route: 048
     Dates: start: 20040210
  2. AVELOX [Suspect]
     Dosage: PO QD
     Route: 048
     Dates: start: 20040211
  3. ENALAPRIL MALEATE [Concomitant]
  4. CEFTRIAXONE [Concomitant]
  5. ACETAMINOPHEN [Concomitant]
  6. METHADONE [Concomitant]

REACTIONS (2)
  - ELECTROCARDIOGRAM QT CORRECTED INTERVAL PROLONGED [None]
  - ELECTROCARDIOGRAM QT PROLONGED [None]
